FAERS Safety Report 12033809 (Version 1)
Quarter: 2016Q1

REPORT INFORMATION
  Report Type: Report from Study
  Country: US (occurrence: US)
  Receive Date: 20160207
  Receipt Date: 20160207
  Transmission Date: 20160526
  Serious: No
  Sender: FDA-Public Use
  Company Number: US-ABBVIE-15K-163-1516630-00

PATIENT
  Age: 58 Year
  Sex: Female
  Weight: 72.19 kg

DRUGS (3)
  1. PRILOSEC [Concomitant]
     Active Substance: OMEPRAZOLE MAGNESIUM
     Indication: GASTROOESOPHAGEAL REFLUX DISEASE
  2. SINGULAIR [Concomitant]
     Active Substance: MONTELUKAST SODIUM
     Indication: SEASONAL ALLERGY
  3. HUMIRA [Suspect]
     Active Substance: ADALIMUMAB
     Indication: RHEUMATOID ARTHRITIS
     Route: 058
     Dates: start: 2011

REACTIONS (10)
  - Pleurisy [Recovered/Resolved]
  - Red blood cell count decreased [Unknown]
  - Mean cell volume increased [Unknown]
  - Eye infection [Recovered/Resolved]
  - Neutrophil count decreased [Unknown]
  - Eosinophil count increased [Unknown]
  - Blood calcium decreased [Unknown]
  - Headache [Recovered/Resolved]
  - Costochondritis [Recovered/Resolved]
  - Monocyte count increased [Unknown]

NARRATIVE: CASE EVENT DATE: 201510
